FAERS Safety Report 24703898 (Version 1)
Quarter: 2024Q4

REPORT INFORMATION
  Report Type: Spontaneous
  Country: US (occurrence: US)
  Receive Date: 20241206
  Receipt Date: 20241206
  Transmission Date: 20250115
  Serious: No
  Sender: ABBVIE
  Company Number: US-ABBVIE-6031204

PATIENT
  Age: 77 Year
  Sex: Male

DRUGS (3)
  1. LINZESS [Suspect]
     Active Substance: LINACLOTIDE
     Indication: Constipation
     Route: 048
     Dates: start: 202409, end: 202409
  2. LINZESS [Suspect]
     Active Substance: LINACLOTIDE
     Indication: Constipation
     Route: 048
     Dates: start: 202409
  3. METAMUCIL [Concomitant]
     Active Substance: PLANTAGO SEED
     Indication: Constipation
     Dosage: TOOK SPOON OF METAMUCIL IN THE AFTERNOON ONCE IN A WHILE

REACTIONS (2)
  - Dyschezia [Not Recovered/Not Resolved]
  - Therapeutic product effect incomplete [Not Recovered/Not Resolved]

NARRATIVE: CASE EVENT DATE: 20241101
